FAERS Safety Report 16237213 (Version 1)
Quarter: 2019Q2

REPORT INFORMATION
  Report Type: Report from Study
  Country: US (occurrence: US)
  Receive Date: 20190425
  Receipt Date: 20190425
  Transmission Date: 20190711
  Serious: Yes (Hospitalization)
  Sender: FDA-Public Use
  Company Number: US-GILEAD-2019-0404091

PATIENT
  Age: 62 Year
  Sex: Male

DRUGS (10)
  1. TETRACYCLINE [Concomitant]
     Active Substance: TETRACYCLINE
  2. METOPROLOL. [Concomitant]
     Active Substance: METOPROLOL
  3. AMOXICILLIN. [Concomitant]
     Active Substance: AMOXICILLIN
  4. FLECAINIDE [Concomitant]
     Active Substance: FLECAINIDE
  5. NIFEDIPINE. [Concomitant]
     Active Substance: NIFEDIPINE
  6. ELIQUIS [Concomitant]
     Active Substance: APIXABAN
  7. PANTOPRAZOLE [Concomitant]
     Active Substance: PANTOPRAZOLE
  8. FEROSUL [Concomitant]
  9. AMBRISENTAN [Suspect]
     Active Substance: AMBRISENTAN
     Indication: PULMONARY ARTERIAL HYPERTENSION
     Dosage: 5 MG, QD
     Route: 065
     Dates: start: 20110111
  10. LEVOTHYROXINE. [Concomitant]
     Active Substance: LEVOTHYROXINE

REACTIONS (2)
  - Influenza [Recovered/Resolved]
  - Product dose omission [Recovered/Resolved]

NARRATIVE: CASE EVENT DATE: 20190408
